FAERS Safety Report 5888717-3 (Version None)
Quarter: 2008Q3

REPORT INFORMATION
  Report Type: 
  Country: None (occurrence: None)
  Receive Date: 20080917
  Receipt Date: 20080901
  Transmission Date: 20090109
  Serious: Yes (Other)
  Sender: FDA-Public Use
  Company Number: 2008BI002358

PATIENT
  Age: 42 Year
  Sex: Female

DRUGS (7)
  1. AVONEX [Suspect]
     Indication: RELAPSING-REMITTING MULTIPLE SCLEROSIS
     Dosage: 30 UG QW IM
     Route: 030
     Dates: start: 19980101, end: 20031001
  2. AVONEX [Suspect]
     Indication: RELAPSING-REMITTING MULTIPLE SCLEROSIS
     Dosage: 30 UG QW IM
     Route: 030
     Dates: start: 20031001, end: 20080129
  3. IMUREL (AZATHIOPRINE) [Suspect]
     Indication: MULTIPLE SCLEROSIS
     Dates: start: 19871007, end: 19871102
  4. IMUREL (AZATHIOPRINE) [Suspect]
     Indication: MULTIPLE SCLEROSIS
     Dates: start: 19871109, end: 19871112
  5. CYCLOPHOSPHAMIDE [Suspect]
     Indication: MULTIPLE SCLEROSIS
     Dates: start: 19890101, end: 19890101
  6. LIORESAL [Concomitant]
  7. COLCHIMAX [Concomitant]

REACTIONS (6)
  - AORTIC DISSECTION [None]
  - COLON CANCER [None]
  - CONSTIPATION [None]
  - DRUG HYPERSENSITIVITY [None]
  - HAEMANGIOMA OF LIVER [None]
  - RENAL CYST [None]
